FAERS Safety Report 15541267 (Version 1)
Quarter: 2018Q4

REPORT INFORMATION
  Report Type: Report from Study
  Country: US (occurrence: US)
  Receive Date: 20181023
  Receipt Date: 20181023
  Transmission Date: 20190205
  Serious: Yes (Other)
  Sender: FDA-Public Use
  Company Number: US-ROCHE-2203416

PATIENT

DRUGS (2)
  1. BEVACIZUMAB. [Suspect]
     Active Substance: BEVACIZUMAB
     Indication: GLIOBLASTOMA
     Route: 065
  2. EVOFOSFAMIDE [Suspect]
     Active Substance: EVOFOSFAMIDE
     Indication: GLIOBLASTOMA
     Dosage: DOSE ESCALATED 240-480 MG/M2 EVERY 2 WEEKS (4 WEEK CYCLE) UNTIL DISEASE PROGRESSION.
     Route: 065

REACTIONS (5)
  - Rash [Unknown]
  - Fatigue [Unknown]
  - Nausea [Unknown]
  - Proctitis [Unknown]
  - Anal inflammation [Unknown]
